FAERS Safety Report 8461358-X (Version None)
Quarter: 2012Q2

REPORT INFORMATION
  Report Type: 
  Country: None (occurrence: None)
  Receive Date: 20120625
  Receipt Date: 20120613
  Transmission Date: 20120825
  Serious: Yes (Hospitalization)
  Sender: FDA-Public Use
  Company Number: ES-JNJFOC-20110202003

PATIENT
  Age: 46 Year
  Sex: Male
  Weight: 73 kg

DRUGS (5)
  1. ACETAMINOPHEN [Concomitant]
  2. ANTIBIOTICS [Concomitant]
  3. OMEPRAZOLE [Concomitant]
  4. METHYLPREDNISOLONE [Concomitant]
  5. REMICADE [Suspect]
     Indication: COLITIS ULCERATIVE
     Route: 042

REACTIONS (1)
  - COLITIS ULCERATIVE [None]
